FAERS Safety Report 18382387 (Version 1)
Quarter: 2020Q4

REPORT INFORMATION
  Report Type: Spontaneous
  Country: US (occurrence: US)
  Receive Date: 20201013
  Receipt Date: 20201013
  Transmission Date: 20210114
  Serious: Yes (Hospitalization)
  Sender: FDA-Public Use
  Company Number: None

PATIENT
  Age: 74 Year
  Sex: Male

DRUGS (15)
  1. ASPIRIN EC [Concomitant]
     Active Substance: ASPIRIN
  2. VITAMIN D3 [Concomitant]
     Active Substance: CHOLECALCIFEROL
  3. SANDOSTATIN LAR DEPOT [Suspect]
     Active Substance: OCTREOTIDE ACETATE
     Route: 030
     Dates: start: 20180123
  4. BENICAR [Concomitant]
     Active Substance: OLMESARTAN MEDOXOMIL
  5. METOPROL TAR [Concomitant]
  6. RAYALDEE [Concomitant]
     Active Substance: CALCIFEDIOL
  7. FLORASTOR [Concomitant]
     Active Substance: SACCHAROMYCES CEREVISIAE
  8. MAGNESIUM [Concomitant]
     Active Substance: MAGNESIUM
  9. ATORVASTATIN [Suspect]
     Active Substance: ATORVASTATIN
  10. CITALOPRAM [Concomitant]
     Active Substance: CITALOPRAM HYDROBROMIDE
  11. CLOPIDOREL [Concomitant]
  12. ZENPEP [Concomitant]
     Active Substance: PANCRELIPASE AMYLASE\PANCRELIPASE LIPASE\PANCRELIPASE PROTEASE
  13. PLAVIX [Concomitant]
     Active Substance: CLOPIDOGREL BISULFATE
  14. FAMOTIDINE. [Concomitant]
     Active Substance: FAMOTIDINE
  15. LANTUS SOLOS [Concomitant]

REACTIONS (5)
  - Myocardial infarction [None]
  - Blood glucose increased [None]
  - Dry skin [None]
  - Coronary arterial stent insertion [None]
  - Diarrhoea [None]

NARRATIVE: CASE EVENT DATE: 20200824
